FAERS Safety Report 4455015-4 (Version None)
Quarter: 2004Q3

REPORT INFORMATION
  Report Type: 
  Country: None (occurrence: None)
  Receive Date: 20040824
  Receipt Date: 20040628
  Transmission Date: 20050211
  Serious: No
  Sender: FDA-Public Use
  Company Number: SU-2004-002485

PATIENT
  Age: 56 Year
  Sex: Female

DRUGS (4)
  1. BENICAR [Suspect]
     Indication: HYPERTENSION
     Dosage: 20 MG QD PO
     Route: 048
     Dates: start: 20040618, end: 20040601
  2. AMARYL [Concomitant]
  3. GLUCOVANCE [Concomitant]
  4. ACEON [Concomitant]

REACTIONS (2)
  - BLOOD PRESSURE DECREASED [None]
  - FATIGUE [None]
